FAERS Safety Report 8547038-0 (Version None)
Quarter: 2012Q3

REPORT INFORMATION
  Report Type: 
  Country: None (occurrence: None)
  Receive Date: 20120727
  Receipt Date: 20120313
  Transmission Date: 20120928
  Serious: No
  Sender: FDA-Public Use
  Company Number: US-ASTRAZENECA-2012SE17216

PATIENT
  Age: 52 Year
  Sex: Male
  Weight: 63.5 kg

DRUGS (3)
  1. SEROQUEL XR [Suspect]
     Indication: SCHIZOPHRENIA
     Route: 048
     Dates: start: 20120201
  2. VITAMIN TAB [Concomitant]
  3. HALDOL [Concomitant]

REACTIONS (3)
  - INSOMNIA [None]
  - ABNORMAL BEHAVIOUR [None]
  - DRUG DOSE OMISSION [None]
